FAERS Safety Report 4280707-X (Version None)
Quarter: 2004Q1

REPORT INFORMATION
  Report Type: 
  Country: None (occurrence: None)
  Receive Date: 20040127
  Receipt Date: 20040112
  Transmission Date: 20041129
  Serious: Yes (Hospitalization)
  Sender: FDA-Public Use
  Company Number: 2004194210US

PATIENT
  Age: 68 Year
  Sex: Female

DRUGS (2)
  1. MICRONASE [Suspect]
     Indication: DIABETES MELLITUS
     Dosage: 1.25 MG, QD; UNK
     Route: 065
  2. GATIFLOXACIN ( ) [Suspect]
     Indication: URINARY TRACT INFECTION
     Dosage: 200 MG, QD; ORAL
     Route: 048

REACTIONS (6)
  - BLOOD GLUCOSE INCREASED [None]
  - CARDIAC FAILURE CONGESTIVE [None]
  - CONDITION AGGRAVATED [None]
  - DRUG INTERACTION [None]
  - HYPOGLYCAEMIA [None]
  - URINARY TRACT INFECTION [None]
